FAERS Safety Report 7208026-X (Version None)
Quarter: 2011Q1

REPORT INFORMATION
  Report Type: 
  Country: None (occurrence: None)
  Receive Date: 20110104
  Receipt Date: 20101230
  Transmission Date: 20110831
  Serious: No
  Sender: FDA-Public Use
  Company Number: US-PFIZER INC-2006098667

PATIENT
  Sex: Female
  Weight: 54 kg

DRUGS (2)
  1. CHANTIX [Suspect]
     Indication: SMOKING CESSATION THERAPY
     Dosage: 0.5MG DAILY
     Route: 065
     Dates: start: 20060807
  2. CHANTIX [Suspect]
     Dosage: 0.5 MG

REACTIONS (2)
  - RASH [None]
  - MUSCULAR WEAKNESS [None]
